FAERS Safety Report 25741721 (Version 2)
Quarter: 2025Q3

REPORT INFORMATION
  Report Type: Spontaneous
  Country: US (occurrence: US)
  Receive Date: 20250829
  Receipt Date: 20250902
  Transmission Date: 20251021
  Serious: No
  Sender: PURDUE
  Company Number: US-PURDUE PHARMA-USA-2025-0320065

PATIENT
  Age: 32 Year
  Sex: Female
  Weight: 100.7 kg

DRUGS (5)
  1. BUTRANS [Suspect]
     Active Substance: BUPRENORPHINE
     Indication: Ehlers-Danlos syndrome
     Dosage: 15 MCG/HR, WEEKLY
     Route: 062
     Dates: start: 20250822
  2. BUTRANS [Suspect]
     Active Substance: BUPRENORPHINE
     Indication: Pain
  3. NAPROXEN [Concomitant]
     Active Substance: NAPROXEN
     Indication: Inflammation
     Route: 065
  4. OXYCODONE [Concomitant]
     Active Substance: OXYCODONE
     Indication: Pain
     Route: 065
  5. LIDOCAINE [Concomitant]
     Active Substance: LIDOCAINE
     Indication: Pain
     Route: 065

REACTIONS (6)
  - Body temperature abnormal [Unknown]
  - Application site pruritus [Unknown]
  - Inadequate analgesia [Unknown]
  - Product adhesion issue [Unknown]
  - Product substitution issue [Unknown]
  - Wrong technique in product usage process [Unknown]

NARRATIVE: CASE EVENT DATE: 20250823
